FAERS Safety Report 12432002 (Version 1)
Quarter: 2016Q2

REPORT INFORMATION
  Report Type: Spontaneous
  Country: US (occurrence: US)
  Receive Date: 20160603
  Receipt Date: 20160603
  Transmission Date: 20160815
  Serious: No
  Sender: FDA-Public Use
  Company Number: US-WEST-WARD PHARMACEUTICALS CORP.-US-H14001-15-01674

PATIENT
  Sex: Male
  Weight: 65.83 kg

DRUGS (5)
  1. DOXYCYCLINE HYCLATE CAPSULES USP [Suspect]
     Active Substance: DOXYCYCLINE HYCLATE
     Indication: ACNE
  2. VITAMINS [Concomitant]
     Active Substance: VITAMINS
     Indication: PRODUCT USED FOR UNKNOWN INDICATION
     Route: 065
  3. OMEGA 3 [Concomitant]
     Active Substance: OMEGA-3 FATTY ACIDS
     Indication: PRODUCT USED FOR UNKNOWN INDICATION
     Route: 065
  4. DOXYCYCLINE HYCLATE CAPSULES USP [Suspect]
     Active Substance: DOXYCYCLINE HYCLATE
     Indication: ERYTHEMA
     Route: 048
     Dates: start: 2014, end: 20150906
  5. COQ10 [Concomitant]
     Active Substance: UBIDECARENONE
     Indication: PRODUCT USED FOR UNKNOWN INDICATION
     Route: 065

REACTIONS (1)
  - Alopecia [Not Recovered/Not Resolved]

NARRATIVE: CASE EVENT DATE: 2014
